FAERS Safety Report 7289389-6 (Version None)
Quarter: 2011Q1

REPORT INFORMATION
  Report Type: 
  Country: None (occurrence: None)
  Receive Date: 20110211
  Receipt Date: 20110209
  Transmission Date: 20110831
  Serious: Yes (Other)
  Sender: FDA-Public Use
  Company Number: US-PFIZER INC-2011028409

PATIENT
  Sex: Male
  Weight: 84.4 kg

DRUGS (4)
  1. AMLODIPINE [Concomitant]
     Indication: BLOOD PRESSURE
     Dosage: 10 MG, 1X/DAY
  2. MULTI-VITAMINS [Concomitant]
     Dosage: UNK, DAILY
  3. GABAPENTIN [Concomitant]
     Indication: INTERVERTEBRAL DISC DISORDER
     Dosage: 600 MG, 3X/DAY
  4. CHANTIX [Suspect]
     Indication: SMOKING CESSATION THERAPY
     Dosage: 0.5 MG, 1X/DAY
     Route: 048
     Dates: start: 20110207, end: 20110209

REACTIONS (2)
  - OROPHARYNGEAL BLISTERING [None]
  - SWOLLEN TONGUE [None]
